FAERS Safety Report 5451368-9 (Version None)
Quarter: 2007Q3

REPORT INFORMATION
  Report Type: 
  Country: None (occurrence: None)
  Receive Date: 20070911
  Receipt Date: 20070911
  Transmission Date: 20080115
  Serious: Yes (Hospitalization, Disabling, Other)
  Sender: FDA-Public Use
  Company Number: None

PATIENT
  Age: 72 Year
  Sex: Female
  Weight: 69.8539 kg

DRUGS (1)
  1. FLEET PHOS SODA [Suspect]
     Indication: COLONOSCOPY
     Dosage: 2-5 OZ BOTTLES ALL IN ONE DAY
     Dates: start: 20050806, end: 20050806

REACTIONS (1)
  - RENAL FAILURE [None]
